FAERS Safety Report 17319934 (Version 1)
Quarter: 2020Q1

REPORT INFORMATION
  Report Type: Spontaneous
  Country: BR (occurrence: BR)
  Receive Date: 20200126
  Receipt Date: 20200126
  Transmission Date: 20200409
  Serious: Yes (Hospitalization, Other)
  Sender: FDA-Public Use
  Company Number: BR-NOVOPROD-708277

PATIENT
  Age: 59 Year
  Sex: Male
  Weight: 67 kg

DRUGS (2)
  1. XULTOPHY 100/3.6 [Suspect]
     Active Substance: INSULIN DEGLUDEC\LIRAGLUTIDE
     Indication: TYPE 2 DIABETES MELLITUS
     Dosage: 12  IU
     Route: 065
     Dates: start: 2019
  2. GLIFAGE [Concomitant]
     Active Substance: METFORMIN HYDROCHLORIDE
     Indication: TYPE 2 DIABETES MELLITUS
     Dosage: 1000 MG, QD
     Route: 065

REACTIONS (1)
  - Diabetic wound [Not Recovered/Not Resolved]
